FAERS Safety Report 7456067-X (Version None)
Quarter: 2011Q2

REPORT INFORMATION
  Report Type: 
  Country: None (occurrence: None)
  Receive Date: 20110503
  Receipt Date: 20110426
  Transmission Date: 20111010
  Serious: Yes (Other)
  Sender: FDA-Public Use
  Company Number: US-PFIZER INC-2011080094

PATIENT
  Age: 72 Year
  Sex: Female

DRUGS (5)
  1. HYDROCHLOROTHIAZIDE [Concomitant]
     Indication: HYPERTENSION
     Route: 048
  2. ASPIRIN [Concomitant]
  3. VERAPAMIL [Concomitant]
     Indication: HYPERTENSION
     Route: 048
  4. ZITHROMAX [Suspect]
     Indication: PNEUMONIA
     Dosage: UNK
     Dates: start: 20110325
  5. ALBUTEROL [Concomitant]
     Indication: CHRONIC OBSTRUCTIVE PULMONARY DISEASE

REACTIONS (1)
  - DEAFNESS [None]
